FAERS Safety Report 16909087 (Version 1)
Quarter: 2019Q4

REPORT INFORMATION
  Report Type: Spontaneous
  Country: GB (occurrence: GB)
  Receive Date: 20191011
  Receipt Date: 20191011
  Transmission Date: 20200122
  Serious: Yes (Hospitalization)
  Sender: FDA-Public Use
  Company Number: GB-PFIZER INC-2019435550

PATIENT
  Sex: Female

DRUGS (1)
  1. DEFEROXAMINE MESILATE [Suspect]
     Active Substance: DEFEROXAMINE MESYLATE
     Dosage: UNK; 3.0G/40ML

REACTIONS (1)
  - Feeling abnormal [Not Recovered/Not Resolved]
